FAERS Safety Report 14323375 (Version 5)
Quarter: 2018Q2

REPORT INFORMATION
  Report Type: Spontaneous
  Country: JP (occurrence: JP)
  Receive Date: 20171226
  Receipt Date: 20180517
  Transmission Date: 20180711
  Serious: Yes (Death, Hospitalization, Other)
  Sender: FDA-Public Use
  Company Number: JP-BRISTOL-MYERS SQUIBB COMPANY-BMS-2017-118043

PATIENT
  Age: 81 Year
  Sex: Male

DRUGS (3)
  1. PACLITAXEL. [Suspect]
     Active Substance: PACLITAXEL
     Indication: GASTRIC CANCER RECURRENT
     Dosage: 5 CYCLES
     Route: 065
     Dates: start: 20170317, end: 20171007
  2. RAMUCIRUMAB [Suspect]
     Active Substance: RAMUCIRUMAB
     Indication: GASTRIC CANCER RECURRENT
     Dosage: 5 CYCLES
     Route: 065
     Dates: start: 20170317, end: 20171007
  3. OPDIVO [Suspect]
     Active Substance: NIVOLUMAB
     Indication: GASTRIC CANCER RECURRENT
     Dosage: 3 MG/KG, UNK
     Route: 041
     Dates: start: 20171111, end: 20171127

REACTIONS (6)
  - Product use in unapproved indication [Unknown]
  - Abdominal pain lower [Unknown]
  - Malaise [Unknown]
  - Abdominal pain upper [Unknown]
  - Myocardial infarction [Fatal]
  - Decreased appetite [Unknown]

NARRATIVE: CASE EVENT DATE: 201711
